FAERS Safety Report 11158968 (Version 1)
Quarter: 2015Q2

REPORT INFORMATION
  Report Type: Spontaneous
  Country: US (occurrence: None)
  Receive Date: 20150602
  Receipt Date: 20150602
  Transmission Date: 20150821
  Serious: Yes (Hospitalization)
  Sender: FDA-Public Use
  Company Number: None

PATIENT
  Age: 86 Year
  Sex: Female
  Weight: 57 kg

DRUGS (5)
  1. CARBOPLATIN. [Suspect]
     Active Substance: CARBOPLATIN
     Indication: HYPOCALCAEMIA
     Dates: start: 20140102
  2. PACLITAXEL. [Suspect]
     Active Substance: PACLITAXEL
     Dates: start: 20140102
  3. CARBOPLATIN. [Suspect]
     Active Substance: CARBOPLATIN
     Indication: DECREASED APPETITE
     Dates: start: 20140102
  4. CARBOPLATIN. [Suspect]
     Active Substance: CARBOPLATIN
     Dates: start: 20140102
  5. CARBOPLATIN. [Suspect]
     Active Substance: CARBOPLATIN
     Indication: HYPOMAGNESAEMIA
     Dates: start: 20140102

REACTIONS (16)
  - Asthenia [None]
  - Ear pain [None]
  - Blood sodium decreased [None]
  - Fatigue [None]
  - Hypersomnia [None]
  - Pyrexia [None]
  - Blood phosphorus decreased [None]
  - Blood potassium decreased [None]
  - Blood magnesium decreased [None]
  - Haemoglobin decreased [None]
  - Headache [None]
  - Decreased activity [None]
  - Hypophagia [None]
  - Blood calcium decreased [None]
  - White blood cell count decreased [None]
  - Confusional state [None]

NARRATIVE: CASE EVENT DATE: 20140115
